FAERS Safety Report 8339592-9 (Version None)
Quarter: 2012Q2

REPORT INFORMATION
  Report Type: 
  Country: None (occurrence: None)
  Receive Date: 20120507
  Receipt Date: 20120502
  Transmission Date: 20120825
  Serious: Yes (Other)
  Sender: FDA-Public Use
  Company Number: PHEH2012US009334

PATIENT
  Sex: Male

DRUGS (9)
  1. FAMPRIDINE [Concomitant]
  2. CORTISOL [Concomitant]
  3. MULTI-VITAMINS [Concomitant]
  4. BACLOFEN [Concomitant]
  5. COLACE [Concomitant]
  6. VITAMIN B-12 [Concomitant]
  7. GILENYA [Suspect]
     Dosage: UNK UKN, UNK
     Route: 048
  8. TAMSULOSIN HCL [Concomitant]
  9. GABAPENTIN [Concomitant]

REACTIONS (9)
  - PAIN IN EXTREMITY [None]
  - VIITH NERVE PARALYSIS [None]
  - MULTIPLE SCLEROSIS RELAPSE [None]
  - JOINT STIFFNESS [None]
  - VISUAL IMPAIRMENT [None]
  - PARAESTHESIA [None]
  - SENSATION OF HEAVINESS [None]
  - GAIT DISTURBANCE [None]
  - MUSCLE SPASTICITY [None]
